FAERS Safety Report 9891460 (Version 2)
Quarter: 2014Q1

REPORT INFORMATION
  Report Type: Spontaneous
  Country: JP (occurrence: JP)
  Receive Date: 20140212
  Receipt Date: 20140226
  Transmission Date: 20141002
  Serious: Yes (Life-Threatening, Hospitalization)
  Sender: FDA-Public Use
  Company Number: JP-ABBVIE-14P-087-1200614-00

PATIENT
  Age: 72 Year
  Sex: Male

DRUGS (11)
  1. KLARICID [Suspect]
     Indication: HELICOBACTER INFECTION
     Route: 048
     Dates: start: 20140130, end: 20140202
  2. KLARICID [Suspect]
     Indication: GASTRIC ULCER
  3. AMARYL [Suspect]
     Indication: TYPE 2 DIABETES MELLITUS
     Route: 048
     Dates: end: 20140202
  4. AMOXICILLIN [Concomitant]
     Indication: HELICOBACTER INFECTION
     Route: 048
     Dates: start: 20140130, end: 20140202
  5. RABEPRAZOLE SODIUM [Concomitant]
     Indication: GASTRIC ULCER HAEMORRHAGE
     Route: 048
     Dates: start: 20140122
  6. METFORMIN HYDROCHLORIDE [Concomitant]
     Indication: TYPE 2 DIABETES MELLITUS
     Route: 048
     Dates: end: 20140202
  7. FERROUS SULFATE [Concomitant]
     Indication: HAEMORRHAGIC ANAEMIA
     Route: 048
     Dates: start: 20140130
  8. IMIDAPRIL HYDROCHLORIDE [Concomitant]
     Indication: HYPERTENSION
     Route: 048
  9. LEVODOPA CARBID [Concomitant]
     Indication: PARKINSON^S DISEASE
     Route: 048
  10. ENTACAPONE [Concomitant]
     Indication: PARKINSON^S DISEASE
     Route: 048
  11. SELEGILINE HYDROCHLORIDE [Concomitant]
     Indication: PARKINSON^S DISEASE
     Route: 048

REACTIONS (2)
  - Altered state of consciousness [Recovered/Resolved]
  - Hypoglycaemia [Recovered/Resolved]
